FAERS Safety Report 8796038 (Version 2)
Quarter: 2012Q4

REPORT INFORMATION
  Report Type: Report from Study
  Country: US (occurrence: US)
  Receive Date: 20120919
  Receipt Date: 20121018
  Transmission Date: 20130627
  Serious: Yes (Hospitalization)
  Sender: FDA-Public Use
  Company Number: US-JNJFOC-20120906796

PATIENT
  Age: 17 Year
  Sex: Male
  Weight: 66.2 kg

DRUGS (6)
  1. REMICADE [Suspect]
     Indication: INFLAMMATORY BOWEL DISEASE
     Route: 042
     Dates: start: 20120323
  2. URSODIOL [Concomitant]
  3. IRON [Concomitant]
  4. PREDNISONE [Concomitant]
  5. MULTIVITAMINS [Concomitant]
  6. VITAMIN D [Concomitant]

REACTIONS (1)
  - Musculoskeletal pain [Recovered/Resolved]
